FAERS Safety Report 4944602-2 (Version None)
Quarter: 2006Q1

REPORT INFORMATION
  Report Type: 
  Country: None (occurrence: None)
  Receive Date: 20060106
  Receipt Date: 20051031
  Transmission Date: 20060701
  Serious: No
  Sender: FDA-Public Use
  Company Number: 200511666BWH

PATIENT
  Age: 74 Year
  Sex: Male
  Weight: 77.1115 kg

DRUGS (5)
  1. LEVITRA [Suspect]
     Indication: ERECTILE DYSFUNCTION
     Dosage: 10 MG, OW, ORAL
     Route: 048
     Dates: start: 20050801, end: 20050901
  2. ALLOPURINOL [Concomitant]
  3. DIOVAN [Concomitant]
  4. ZANTAC [Concomitant]
  5. NIFEDIPINE [Concomitant]

REACTIONS (5)
  - ASTHENIA [None]
  - BACTERIAL INFECTION [None]
  - DYSPNOEA [None]
  - LOWER RESPIRATORY TRACT INFECTION BACTERIAL [None]
  - WEIGHT DECREASED [None]
